FAERS Safety Report 8326611-9 (Version None)
Quarter: 2012Q2

REPORT INFORMATION
  Report Type: 
  Country: None (occurrence: None)
  Receive Date: 20120501
  Receipt Date: 20120425
  Transmission Date: 20120825
  Serious: Yes (Other)
  Sender: FDA-Public Use
  Company Number: AU-ROXANE LABORATORIES, INC.-2012-RO-01121RO

PATIENT
  Age: 50 Year
  Sex: Male

DRUGS (9)
  1. METHOTREXATE [Suspect]
  2. ADALIMUMAB [Suspect]
     Indication: RHEUMATOID ARTHRITIS
  3. HYDROXYCHLOROQUINE SULFATE [Suspect]
     Indication: RHEUMATOID ARTHRITIS
     Dosage: 400 MG
  4. PREDNISONE [Suspect]
     Dosage: 5 MG
  5. METHOTREXATE [Suspect]
     Indication: RHEUMATOID ARTHRITIS
  6. PREDNISONE [Suspect]
     Indication: RHEUMATOID ARTHRITIS
     Dosage: 10 MG
  7. CELECOXIB [Suspect]
     Indication: RHEUMATOID ARTHRITIS
     Dosage: 200 MG
  8. LEFLUNOMIDE [Suspect]
     Indication: RHEUMATOID ARTHRITIS
     Dosage: 10 MG
  9. ETANERCEPT [Suspect]
     Indication: RHEUMATOID ARTHRITIS
     Dates: start: 20060201

REACTIONS (2)
  - SARCOIDOSIS [None]
  - ANGIOTENSIN CONVERTING ENZYME INCREASED [None]
